FAERS Safety Report 6829167-2 (Version None)
Quarter: 2010Q3

REPORT INFORMATION
  Report Type: 
  Country: None (occurrence: None)
  Receive Date: 20100709
  Receipt Date: 20070306
  Transmission Date: 20110219
  Serious: No
  Sender: FDA-Public Use
  Company Number: US-PFIZER INC-2007017789

PATIENT
  Sex: Male
  Weight: 101.6 kg

DRUGS (9)
  1. CHANTIX [Suspect]
     Indication: SMOKING CESSATION THERAPY
     Route: 048
     Dates: start: 20061201
  2. ATENOLOL [Concomitant]
  3. COZAAR [Concomitant]
  4. METFORMIN HCL [Concomitant]
  5. TRICOR [Concomitant]
  6. MORNIFLUMATE [Concomitant]
  7. FUROSEMIDE [Concomitant]
  8. VYTORIN [Concomitant]
  9. QUININE [Concomitant]

REACTIONS (1)
  - ABDOMINAL DISCOMFORT [None]
